FAERS Safety Report 4875644-3 (Version None)
Quarter: 2006Q1

REPORT INFORMATION
  Report Type: 
  Country: None (occurrence: None)
  Receive Date: 20060105
  Receipt Date: 20051226
  Transmission Date: 20060701
  Serious: Yes (Other)
  Sender: FDA-Public Use
  Company Number: 2005170588

PATIENT
  Age: 44 Year
  Sex: Female

DRUGS (1)
  1. DEPO-PROVERA [Suspect]
     Indication: MENSTRUAL DISCOMFORT
     Dosage: 150 MG (150 MG, SINGLE INJECTION)
     Dates: start: 20051112, end: 20051112

REACTIONS (6)
  - ARTHROPATHY [None]
  - BACTERIAL INFECTION [None]
  - DRUG ADMINISTRATION ERROR [None]
  - INJECTION SITE JOINT MOVEMENT IMPAIRMENT [None]
  - PROCEDURAL COMPLICATION [None]
  - SUBCUTANEOUS ABSCESS [None]
